FAERS Safety Report 17262485 (Version 1)
Quarter: 2020Q1

REPORT INFORMATION
  Report Type: Spontaneous
  Country: US (occurrence: US)
  Receive Date: 20200110
  Receipt Date: 20200110
  Transmission Date: 20200409
  Serious: No
  Sender: FDA-Public Use
  Company Number: None

PATIENT
  Age: 54 Year
  Sex: Male

DRUGS (1)
  1. MESNEX [Suspect]
     Active Substance: MESNA

REACTIONS (1)
  - Hospice care [None]

NARRATIVE: CASE EVENT DATE: 20200110
